FAERS Safety Report 6102068-3 (Version None)
Quarter: 2009Q1

REPORT INFORMATION
  Report Type: 
  Country: None (occurrence: None)
  Receive Date: 20090303
  Receipt Date: 20090303
  Transmission Date: 20090719
  Serious: Yes (Other)
  Sender: FDA-Public Use
  Company Number: None

PATIENT
  Sex: Female
  Weight: 64.4108 kg

DRUGS (1)
  1. CIPROFLOXACIN [Suspect]
     Indication: URINARY TRACT INFECTION
     Dosage: 1 12 HOURS PO
     Route: 048
     Dates: start: 20090224, end: 20090301

REACTIONS (4)
  - ARTHRALGIA [None]
  - HEAD DISCOMFORT [None]
  - MUSCULOSKELETAL PAIN [None]
  - NASOPHARYNGITIS [None]
